FAERS Safety Report 23636029 (Version 3)
Quarter: 2024Q3

REPORT INFORMATION
  Report Type: Report from Study
  Country: US (occurrence: US)
  Receive Date: 20240315
  Receipt Date: 20240920
  Transmission Date: 20241017
  Serious: Yes (Disabling, Other)
  Sender: EMD SERONO INC
  Company Number: US-Merck Healthcare KGaA-2024013898

PATIENT
  Sex: Male

DRUGS (1)
  1. MAVENCLAD [Suspect]
     Active Substance: CLADRIBINE
     Indication: Multiple sclerosis
     Dosage: YEAR ONE THERAPY
     Route: 048
     Dates: start: 20230414, end: 20230517

REACTIONS (8)
  - Cerebrovascular accident [Recovering/Resolving]
  - Hand deformity [Unknown]
  - Muscular weakness [Recovering/Resolving]
  - Tremor [Not Recovered/Not Resolved]
  - Gait disturbance [Unknown]
  - Hemiparesis [Unknown]
  - Loss of personal independence in daily activities [Not Recovered/Not Resolved]
  - Movement disorder [Recovering/Resolving]
